FAERS Safety Report 9854924 (Version 1)
Quarter: 2014Q1

REPORT INFORMATION
  Report Type: Spontaneous
  Country: DE (occurrence: DE)
  Receive Date: 20140130
  Receipt Date: 20140130
  Transmission Date: 20141002
  Serious: Yes (Hospitalization)
  Sender: FDA-Public Use
  Company Number: DE-AMGEN-DEUSP2014006245

PATIENT
  Age: 75 Year
  Sex: Female

DRUGS (7)
  1. ENBREL [Suspect]
     Indication: RHEUMATOID ARTHRITIS
     Dosage: 50 MG, WEEKLY
     Route: 065
     Dates: start: 20120706
  2. ATACAND PLUS [Concomitant]
     Dosage: UNK
  3. GLIMEPIRID [Concomitant]
     Dosage: 1 MG, UNK
  4. BISOPROLOL [Concomitant]
     Dosage: 5 MG, UNK
  5. PREDNISOLON                        /00016201/ [Concomitant]
     Dosage: 5 MG, UNK
  6. PANTOPRAZOLE [Concomitant]
     Dosage: 40 MG, UNK
  7. CALCIGEN D3 [Concomitant]
     Dosage: UNK

REACTIONS (1)
  - Corneal disorder [Not Recovered/Not Resolved]
